FAERS Safety Report 5057290-4 (Version None)
Quarter: 2006Q3

REPORT INFORMATION
  Report Type: 
  Country: None (occurrence: None)
  Receive Date: 20060721
  Receipt Date: 20050720
  Transmission Date: 20061208
  Serious: Yes (Other)
  Sender: FDA-Public Use
  Company Number: US-GLAXOSMITHKLINE-A0567048A

PATIENT
  Age: 81 Year
  Sex: Female

DRUGS (9)
  1. AVANDIA [Suspect]
     Route: 048
     Dates: start: 20040901, end: 20050801
  2. LIPITOR [Concomitant]
  3. GLIPIZIDE [Concomitant]
  4. NORVASC [Concomitant]
  5. ATENOLOL [Concomitant]
  6. ZOLOFT [Concomitant]
  7. LASIX [Concomitant]
  8. LANOXIN [Concomitant]
  9. KAPTOPRIL [Concomitant]

REACTIONS (2)
  - CARDIAC FAILURE [None]
  - OEDEMA [None]
